FAERS Safety Report 10778641 (Version 1)
Quarter: 2015Q1

REPORT INFORMATION
  Report Type: Spontaneous
  Country: US (occurrence: US)
  Receive Date: 20150210
  Receipt Date: 20150210
  Transmission Date: 20150721
  Serious: Yes (Hospitalization, Other)
  Sender: FDA-Public Use
  Company Number: US-AMGEN-USASP2015010136

PATIENT
  Age: 49 Year
  Sex: Female

DRUGS (2)
  1. HUMIRA [Concomitant]
     Active Substance: ADALIMUMAB
     Dosage: UNK
  2. ENBREL [Suspect]
     Active Substance: ETANERCEPT
     Indication: RHEUMATOID ARTHRITIS
     Dosage: 50 MG, QWK
     Route: 065
     Dates: start: 20010604

REACTIONS (14)
  - Arthralgia [Not Recovered/Not Resolved]
  - Ligament sprain [Unknown]
  - Synovitis [Recovered/Resolved]
  - Fall [Recovered/Resolved]
  - Limb operation [Recovered/Resolved]
  - Peripheral swelling [Not Recovered/Not Resolved]
  - Mobility decreased [Not Recovered/Not Resolved]
  - Pain [Not Recovered/Not Resolved]
  - Joint destruction [Recovered/Resolved]
  - Intervertebral disc operation [Recovered/Resolved]
  - Joint swelling [Not Recovered/Not Resolved]
  - Joint injury [Recovered/Resolved]
  - Therapeutic response decreased [Recovered/Resolved]
  - Spinal osteoarthritis [Recovered/Resolved]

NARRATIVE: CASE EVENT DATE: 201001
